FAERS Safety Report 16691770 (Version 2)
Quarter: 2020Q2

REPORT INFORMATION
  Report Type: Spontaneous
  Country: CA (occurrence: CA)
  Receive Date: 20190812
  Receipt Date: 20200406
  Transmission Date: 20200713
  Serious: Yes (Death, Other)
  Sender: FDA-Public Use
  Company Number: CA-SAMSUNG BIOEPIS-SB-2019-21788

PATIENT
  Age: 57 Year
  Sex: Female

DRUGS (7)
  1. GABAPENTIN. [Concomitant]
     Active Substance: GABAPENTIN
     Indication: URINARY TRACT DISORDER
     Dosage: UNKNOWN
     Route: 065
  2. ACETAMINOPHEN AND CODEINE [Concomitant]
     Active Substance: ACETAMINOPHEN\CODEINE PHOSPHATE
     Indication: PAIN
     Dosage: UNKNOWN
     Route: 065
  3. METHOTREXATE. [Concomitant]
     Active Substance: METHOTREXATE
     Indication: PRODUCT USED FOR UNKNOWN INDICATION
     Route: 065
  4. PANTOLOC [Concomitant]
     Active Substance: PANTOPRAZOLE SODIUM
     Indication: GASTROOESOPHAGEAL REFLUX DISEASE
     Dosage: UNKNOWN, ENTERIC-COATED
     Route: 065
  5. INFLIXIMAB [Suspect]
     Active Substance: INFLIXIMAB
     Indication: PSORIATIC ARTHROPATHY
     Route: 042
  6. INSULIN [Concomitant]
     Active Substance: INSULIN NOS
     Indication: PRODUCT USED FOR UNKNOWN INDICATION
     Dosage: UNKNOWN
     Route: 065
  7. LIPITOR [Concomitant]
     Active Substance: ATORVASTATIN CALCIUM
     Indication: PRODUCT USED FOR UNKNOWN INDICATION
     Dosage: UNKNOWN
     Route: 065

REACTIONS (20)
  - Nausea [Fatal]
  - Dehydration [Fatal]
  - Malaise [Fatal]
  - Neuropathy peripheral [Fatal]
  - Sinus disorder [Fatal]
  - Delirium [Fatal]
  - Off label use [Fatal]
  - Foot fracture [Fatal]
  - Ketoacidosis [Fatal]
  - Infusion site extravasation [Fatal]
  - Intentional product use issue [Fatal]
  - Product use issue [Fatal]
  - Death [Fatal]
  - Herpes zoster [Fatal]
  - Cataract [Fatal]
  - Pathogen resistance [Fatal]
  - Infusion related reaction [Fatal]
  - Vomiting [Fatal]
  - Nasopharyngitis [Fatal]
  - Product dose omission [Fatal]
